FAERS Safety Report 20412043 (Version 1)
Quarter: 2022Q1

REPORT INFORMATION
  Report Type: Spontaneous
  Country: US (occurrence: US)
  Receive Date: 20220201
  Receipt Date: 20220201
  Transmission Date: 20220423
  Serious: No
  Sender: FDA-Public Use
  Company Number: US-ABBVIE-21K-163-4157985-00

PATIENT
  Sex: Female

DRUGS (4)
  1. LUPRON DEPOT [Suspect]
     Active Substance: LEUPROLIDE ACETATE
     Indication: Antioestrogen therapy
     Dosage: 1 YEARS
     Route: 030
     Dates: start: 2020
  2. LUPRON DEPOT [Suspect]
     Active Substance: LEUPROLIDE ACETATE
     Indication: Artificial menopause
  3. LUPRON DEPOT [Suspect]
     Active Substance: LEUPROLIDE ACETATE
     Indication: Antioestrogen therapy
     Route: 030
     Dates: start: 202111
  4. LUPRON DEPOT [Suspect]
     Active Substance: LEUPROLIDE ACETATE
     Indication: Artificial menopause

REACTIONS (5)
  - Feeling abnormal [Unknown]
  - Emotional disorder [Unknown]
  - Disease susceptibility [Unknown]
  - Off label use [Unknown]
  - Wrong product administered [Unknown]
